FAERS Safety Report 19735317 (Version 1)
Quarter: 2021Q3

REPORT INFORMATION
  Report Type: Spontaneous
  Country: US (occurrence: US)
  Receive Date: 20210823
  Receipt Date: 20210823
  Transmission Date: 20211014
  Serious: Yes (Other)
  Sender: FDA-Public Use
  Company Number: US-ASTRAZENECA-2021A685267

PATIENT
  Sex: Female

DRUGS (1)
  1. LYNPARZA [Suspect]
     Active Substance: OLAPARIB
     Route: 048
     Dates: start: 20210602

REACTIONS (5)
  - Cough [Unknown]
  - Product use complaint [Unknown]
  - Cerebellar haemorrhage [Unknown]
  - Product dose omission issue [Unknown]
  - Product use issue [Unknown]
